FAERS Safety Report 15853333 (Version 2)
Quarter: 2019Q1

REPORT INFORMATION
  Report Type: Spontaneous
  Country: SK (occurrence: SK)
  Receive Date: 20190122
  Receipt Date: 20190204
  Transmission Date: 20190417
  Serious: Yes (Death, Other)
  Sender: FDA-Public Use
  Company Number: SK-ELI_LILLY_AND_COMPANY-SK201901008561

PATIENT
  Age: 53 Year
  Sex: Female

DRUGS (4)
  1. GEMCITABINE HYDROCHLORIDE. [Suspect]
     Active Substance: GEMCITABINE HYDROCHLORIDE
     Dosage: 500 MG/M2, CYCLICAL
     Route: 042
     Dates: start: 201703, end: 201706
  2. CISPLATIN. [Suspect]
     Active Substance: CISPLATIN
     Indication: PANCREATIC CARCINOMA
     Dosage: 50 MG/M2, CYCLICAL
     Route: 042
     Dates: start: 201703, end: 201706
  3. GEMCITABINE HYDROCHLORIDE. [Suspect]
     Active Substance: GEMCITABINE HYDROCHLORIDE
     Indication: PANCREATIC CARCINOMA
     Dosage: 1000 MG/M2, CYCLICAL
     Route: 042
     Dates: start: 201703, end: 201706
  4. CISPLATIN. [Suspect]
     Active Substance: CISPLATIN
     Dosage: 25 MG/M2, UNK
     Route: 042
     Dates: start: 201703, end: 201706

REACTIONS (12)
  - Malignant neoplasm progression [Fatal]
  - Decreased appetite [Unknown]
  - Thrombocytopenia [Unknown]
  - Anaemia [Unknown]
  - Nausea [Unknown]
  - Cholestasis [Unknown]
  - Off label use [Unknown]
  - Abdominal pain [Unknown]
  - Nutritional condition abnormal [Unknown]
  - Gastrointestinal toxicity [Unknown]
  - Performance status decreased [Unknown]
  - Haematotoxicity [Unknown]

NARRATIVE: CASE EVENT DATE: 2017
